FAERS Safety Report 4942765-6 (Version None)
Quarter: 2006Q1

REPORT INFORMATION
  Report Type: 
  Country: None (occurrence: None)
  Receive Date: 20060309
  Receipt Date: 20060302
  Transmission Date: 20060701
  Serious: Yes (Death)
  Sender: FDA-Public Use
  Company Number: HQWYE107602MAR06

PATIENT
  Age: 66 Year
  Sex: Female

DRUGS (1)
  1. AMIODARONE  (AMIODARONE, TABLET) [Suspect]
     Indication: ATRIAL FIBRILLATION
     Dosage: 200 MG 1X PER 1 DAY, ORAL
     Route: 048
     Dates: start: 20041201, end: 20060211

REACTIONS (3)
  - DRUG TOXICITY [None]
  - HEPATIC CIRRHOSIS [None]
  - MULTI-ORGAN FAILURE [None]
